FAERS Safety Report 17206394 (Version 1)
Quarter: 2020Q1

REPORT INFORMATION
  Report Type: Spontaneous
  Country: US (occurrence: US)
  Receive Date: 20191226
  Receipt Date: 20191226
  Transmission Date: 20200409
  Serious: No
  Sender: FDA-Public Use
  Company Number: None

PATIENT
  Age: 49 Year
  Sex: Female
  Weight: 56.7 kg

DRUGS (8)
  1. SPINAL CORD STIMULATOR [Concomitant]
  2. TYLENOL [Concomitant]
     Active Substance: ACETAMINOPHEN
  3. ZANTAC [Concomitant]
     Active Substance: RANITIDINE HYDROCHLORIDE
  4. IBUPROPEN [Concomitant]
  5. GABAPENTIN. [Concomitant]
     Active Substance: GABAPENTIN
  6. CYMBALTA [Concomitant]
     Active Substance: DULOXETINE HYDROCHLORIDE
  7. TRAZODONE [Concomitant]
     Active Substance: TRAZODONE HYDROCHLORIDE
  8. OXYCOD/APAP TAB 10-325MG GENERIC FOR ENDOCET ORAL TABLET 10-325 MG [Suspect]
     Active Substance: ACETAMINOPHEN\OXYCODONE HYDROCHLORIDE
     Indication: PAIN
     Dosage: ?          QUANTITY:1 TABLET(S);?
     Route: 048
     Dates: start: 20181003, end: 20191226

REACTIONS (3)
  - Pain [None]
  - Blister [None]
  - Pruritus [None]

NARRATIVE: CASE EVENT DATE: 20191103
